FAERS Safety Report 20453876 (Version 2)
Quarter: 2022Q1

REPORT INFORMATION
  Report Type: Spontaneous
  Country: JP (occurrence: JP)
  Receive Date: 20220210
  Receipt Date: 20220316
  Transmission Date: 20220423
  Serious: Yes (Other)
  Sender: FDA-Public Use
  Company Number: JP-BAUSCH-BL-2022-003415

PATIENT
  Age: 65 Year
  Sex: Male

DRUGS (2)
  1. BRODALUMAB [Suspect]
     Active Substance: BRODALUMAB
     Indication: Pustular psoriasis
     Dosage: ADMINISTERED AT WEEKS 0, 1, AND 2.
     Route: 065
  2. BRODALUMAB [Suspect]
     Active Substance: BRODALUMAB
     Dosage: AT WEEKS 6 AND 10
     Route: 065

REACTIONS (1)
  - Overlap syndrome [Recovered/Resolved]
